FAERS Safety Report 10746152 (Version 1)
Quarter: 2015Q1

REPORT INFORMATION
  Report Type: Spontaneous
  Country: IN (occurrence: IN)
  Receive Date: 20150128
  Receipt Date: 20150128
  Transmission Date: 20150721
  Serious: Yes (Death)
  Sender: FDA-Public Use
  Company Number: IN-PFIZER INC-2014322910

PATIENT
  Age: 38 Year
  Sex: Male

DRUGS (1)
  1. SUTENT [Suspect]
     Active Substance: SUNITINIB MALATE
     Indication: GASTROINTESTINAL STROMAL TUMOUR
     Dosage: 37.5 MG, 1X/DAY CYCLIC
     Route: 048
     Dates: start: 20140923

REACTIONS (2)
  - Rash [Unknown]
  - Cardiac arrest [Fatal]

NARRATIVE: CASE EVENT DATE: 2014
